FAERS Safety Report 6533681-7 (Version None)
Quarter: 2010Q1

REPORT INFORMATION
  Report Type: 
  Country: None (occurrence: None)
  Receive Date: 20100111
  Receipt Date: 20100104
  Transmission Date: 20100710
  Serious: Yes (Hospitalization)
  Sender: FDA-Public Use
  Company Number: US-ABBOTT-10P-163-0617436-00

PATIENT
  Sex: Male

DRUGS (3)
  1. NIASPAN [Suspect]
     Indication: DRUG USE FOR UNKNOWN INDICATION
     Dates: start: 20080101, end: 20080401
  2. NIASPAN [Suspect]
     Dates: start: 20080401
  3. NIASPAN [Suspect]

REACTIONS (2)
  - FLUSHING [None]
  - HEPATIC INFECTION [None]
